FAERS Safety Report 8924860 (Version 1)
Quarter: 2012Q4

REPORT INFORMATION
  Report Type: 
  Country: CO (occurrence: CO)
  Receive Date: 20121126
  Receipt Date: 20121126
  Transmission Date: 20130627
  Serious: Yes (Other)
  Sender: FDA-Public Use
  Company Number: CO-PFIZER INC-2012293979

PATIENT
  Age: 77 Year
  Sex: Female

DRUGS (7)
  1. LYRICA [Suspect]
     Indication: PAIN
     Dosage: 75 mg, 1x/day
     Route: 048
     Dates: start: 201206
  2. LYRICA [Suspect]
     Dosage: 150 mg, 1x/day
     Route: 048
     Dates: end: 201208
  3. LYRICA [Suspect]
     Dosage: 75 mg, 1x/day
     Route: 048
  4. RIVOTRIL [Concomitant]
     Indication: ANXIETY
     Dosage: 9 to 10 drops, 1x/day
     Route: 048
     Dates: start: 2006
  5. RIVOTRIL [Concomitant]
     Indication: DEPRESSION
  6. IRBESARTAN [Concomitant]
     Indication: HYPERTENSION
     Dosage: half a tablet of 150 mg, UNK
     Route: 048
     Dates: start: 2008
  7. EPAMIN [Concomitant]
     Indication: CONVULSIONS
     Dosage: 100 mg, 1x/day
     Route: 048
     Dates: start: 2008

REACTIONS (1)
  - Scoliosis [Unknown]
